FAERS Safety Report 11146113 (Version 1)
Quarter: 2015Q2

REPORT INFORMATION
  Report Type: Spontaneous
  Country: US (occurrence: US)
  Receive Date: 20150528
  Receipt Date: 20150528
  Transmission Date: 20150821
  Serious: No
  Sender: FDA-Public Use
  Company Number: US-GLAXOSMITHKLINE-US2015GSK052590

PATIENT
  Sex: Female

DRUGS (1)
  1. FLOLAN [Suspect]
     Active Substance: EPOPROSTENOL SODIUM
     Indication: PULMONARY ARTERIAL HYPERTENSION
     Dosage: 30.5 NG/KG/MIN, CONCENTRATION OF 30,000 NG/ML AT 64 ML/DAY AND 1.5 MG VIAL STRENGTH
     Route: 042
     Dates: start: 20110422

REACTIONS (2)
  - Device alarm issue [Unknown]
  - Emergency care [Unknown]
